FAERS Safety Report 11768906 (Version 1)
Quarter: 2015Q4

REPORT INFORMATION
  Report Type: Spontaneous
  Country: ES (occurrence: ES)
  Receive Date: 20151123
  Receipt Date: 20151123
  Transmission Date: 20160304
  Serious: Yes (Hospitalization)
  Sender: FDA-Public Use
  Company Number: ES-ROXANE LABORATORIES, INC.-2015-RO-01957RO

PATIENT
  Age: 68 Year
  Sex: Female

DRUGS (2)
  1. PREDNISONE. [Suspect]
     Active Substance: PREDNISONE
     Indication: RHEUMATOID ARTHRITIS
     Route: 048
  2. METHOTREXATE [Suspect]
     Active Substance: METHOTREXATE
     Indication: RHEUMATOID ARTHRITIS
     Route: 048

REACTIONS (1)
  - Pneumonitis [Recovered/Resolved]
